FAERS Safety Report 4718037-1 (Version None)
Quarter: 2005Q3

REPORT INFORMATION
  Report Type: 
  Country: None (occurrence: None)
  Receive Date: 20050720
  Receipt Date: 20050609
  Transmission Date: 20060218
  Serious: Yes (Other)
  Sender: FDA-Public Use
  Company Number: 2005UW08950

PATIENT
  Age: 86 Year
  Sex: Male
  Weight: 59 kg

DRUGS (8)
  1. CRESTOR [Suspect]
     Indication: HYPERCHOLESTEROLAEMIA
     Route: 048
  2. PLAVIX [Concomitant]
     Route: 048
  3. DIGOXIN [Concomitant]
     Route: 048
  4. FOLIC ACID [Concomitant]
     Route: 048
  5. ASCORBIC ACID [Concomitant]
     Route: 048
  6. ASPIRIN [Concomitant]
     Route: 048
  7. VITAMIN B-12 [Concomitant]
  8. FEROSOL [Concomitant]

REACTIONS (10)
  - ARTHRALGIA [None]
  - FIBROMYALGIA [None]
  - JUDGEMENT IMPAIRED [None]
  - MUSCULAR WEAKNESS [None]
  - MYOCARDIAL INFARCTION [None]
  - NERVE INJURY [None]
  - PAIN IN EXTREMITY [None]
  - PARAESTHESIA [None]
  - ROAD TRAFFIC ACCIDENT [None]
  - TENDONITIS [None]
